FAERS Safety Report 4377902-8 (Version None)
Quarter: 2004Q2

REPORT INFORMATION
  Report Type: 
  Country: None (occurrence: None)
  Receive Date: 20040601
  Receipt Date: 20040209
  Transmission Date: 20050107
  Serious: No
  Sender: FDA-Public Use
  Company Number: WAES 0402USA00755

PATIENT
  Age: 81 Year
  Sex: Female

DRUGS (8)
  1. ZETIA [Suspect]
     Indication: BLOOD CHOLESTEROL INCREASED
     Dosage: 10 MG, DAILY, PO
     Route: 048
     Dates: start: 20040204
  2. ASACOL [Concomitant]
  3. AVANDIA [Concomitant]
  4. DIOVAN [Concomitant]
  5. NORVASC [Concomitant]
  6. PROTONIX [Concomitant]
  7. ASPIRIN [Concomitant]
  8. ATENOLOL [Concomitant]

REACTIONS (2)
  - OEDEMA [None]
  - PAIN IN EXTREMITY [None]
